FAERS Safety Report 4635659-7 (Version None)
Quarter: 2005Q2

REPORT INFORMATION
  Report Type: 
  Country: None (occurrence: None)
  Receive Date: 20050414
  Receipt Date: 20050408
  Transmission Date: 20051028
  Serious: No
  Sender: FDA-Public Use
  Company Number: 2005-127265-NL

PATIENT
  Sex: Female

DRUGS (2)
  1. MIRTAZAPINE [Suspect]
     Dosage: DF
  2. CARBAMAZEPINE [Suspect]
     Dosage: DF

REACTIONS (1)
  - PHLEBOTHROMBOSIS [None]
